FAERS Safety Report 10357372 (Version 1)
Quarter: 2014Q3

REPORT INFORMATION
  Report Type: Spontaneous
  Country: DE (occurrence: DE)
  Receive Date: 20140801
  Receipt Date: 20140801
  Transmission Date: 20150326
  Serious: Yes (Other)
  Sender: FDA-Public Use
  Company Number: DE-TEVA-430502GER

PATIENT
  Age: 0 Year
  Sex: Male

DRUGS (5)
  1. IBUPROFEN. [Suspect]
     Active Substance: IBUPROFEN
     Route: 063
  2. CIPROFLOXACIN. [Suspect]
     Active Substance: CIPROFLOXACIN
     Route: 063
  3. PARACETAMOL [Suspect]
     Active Substance: ACETAMINOPHEN
     Route: 063
  4. PARACETAMOL [Suspect]
     Active Substance: ACETAMINOPHEN
     Route: 063
  5. THEOPHYLLIN [Suspect]
     Active Substance: THEOPHYLLINE
     Route: 063

REACTIONS (2)
  - Exposure during breast feeding [Unknown]
  - Hepatobiliary disease [Unknown]
